FAERS Safety Report 6325179-6 (Version None)
Quarter: 2009Q3

REPORT INFORMATION
  Report Type: 
  Country: None (occurrence: None)
  Receive Date: 20090820
  Receipt Date: 20090814
  Transmission Date: 20100115
  Serious: Yes (Death)
  Sender: FDA-Public Use
  Company Number: DAV-AE-FUR-09-001

PATIENT
  Age: 52 Year
  Sex: Male

DRUGS (5)
  1. FUROSEMIDE [Suspect]
     Indication: PEMPHIGOID
  2. PREDNISOLONE [Concomitant]
  3. CYCLOSPORINE [Concomitant]
  4. TACROLIMUS [Concomitant]
  5. MYOPHENOLIC ACID [Concomitant]

REACTIONS (6)
  - COAGULOPATHY [None]
  - DISEASE RECURRENCE [None]
  - IGA NEPHROPATHY [None]
  - NEPHROTIC SYNDROME [None]
  - PEMPHIGOID [None]
  - SEPSIS [None]
